FAERS Safety Report 4398794-7 (Version None)
Quarter: 2004Q3

REPORT INFORMATION
  Report Type: 
  Country: None (occurrence: None)
  Receive Date: 20040712
  Receipt Date: 20040621
  Transmission Date: 20050211
  Serious: Yes (Hospitalization, Other)
  Sender: FDA-Public Use
  Company Number: USA040670734

PATIENT
  Age: 85 Year
  Sex: Female

DRUGS (8)
  1. FORTEO [Suspect]
     Indication: OSTEOPOROSIS
     Dosage: 20 UG DAY
     Dates: start: 20030501, end: 20040501
  2. DIGOXIN [Concomitant]
  3. POTASSIUM [Concomitant]
  4. COUMADIN [Concomitant]
  5. TRANSDERM-NITRO (GLYCERYL TRINITRATE) [Concomitant]
  6. LABETALOL HCL [Concomitant]
  7. PRILOSEC [Concomitant]
  8. LISINOPRIL [Concomitant]

REACTIONS (11)
  - APHASIA [None]
  - ASTHENIA [None]
  - ATRIAL FIBRILLATION [None]
  - CEREBROVASCULAR ACCIDENT [None]
  - HEADACHE [None]
  - HYPOAESTHESIA [None]
  - INFLUENZA [None]
  - PAIN IN EXTREMITY [None]
  - PHARMACEUTICAL PRODUCT COMPLAINT [None]
  - SPEECH DISORDER [None]
  - TRANSIENT ISCHAEMIC ATTACK [None]
